FAERS Safety Report 17080036 (Version 1)
Quarter: 2019Q4

REPORT INFORMATION
  Report Type: Spontaneous
  Country: US (occurrence: US)
  Receive Date: 20191127
  Receipt Date: 20191127
  Transmission Date: 20200122
  Serious: No
  Sender: FDA-Public Use
  Company Number: US-TEVA-2019-US-1141975

PATIENT
  Sex: Male

DRUGS (1)
  1. WARFARIN [Suspect]
     Active Substance: WARFARIN
     Dosage: DOSE:  TAKING BETWEEN 2 MG AND 4 M AND SPLITTING THE TABLETS TO ADJUST HIS DOSAGE
     Route: 065
     Dates: start: 201907

REACTIONS (1)
  - Drug level fluctuating [Unknown]

NARRATIVE: CASE EVENT DATE: 201907
